FAERS Safety Report 9168859 (Version 2)
Quarter: 2013Q2

REPORT INFORMATION
  Report Type: Spontaneous
  Country: GB (occurrence: None)
  Receive Date: 20130308
  Receipt Date: 20130419
  Transmission Date: 20140414
  Serious: Yes (Other)
  Sender: FDA-Public Use
  Company Number: 2013AP003355

PATIENT
  Age: 72 Year
  Sex: Female

DRUGS (4)
  1. ALENDRONATE [Suspect]
  2. PREDNISOLONE [Suspect]
     Indication: TEMPORAL ARTERITIS
  3. DICLOFENAC (DICLOFENAC) [Concomitant]
  4. BUSCOPAN (HYOSCINE BUTYLBROMIDE) [Concomitant]

REACTIONS (35)
  - Haemorrhage [None]
  - Disturbance in attention [None]
  - Cushing^s syndrome [None]
  - Dyspnoea [None]
  - Diverticulitis [None]
  - Drug hypersensitivity [None]
  - Eye pruritus [None]
  - Feeling abnormal [None]
  - Dizziness [None]
  - Feeling abnormal [None]
  - Headache [None]
  - Hearing impaired [None]
  - Heart rate irregular [None]
  - Frequent bowel movements [None]
  - Increased upper airway secretion [None]
  - Pollakiuria [None]
  - Memory impairment [None]
  - Onychomadesis [None]
  - Pain [None]
  - Paraesthesia [None]
  - Tremor [None]
  - Insomnia [None]
  - Abnormal faeces [None]
  - Local swelling [None]
  - Joint swelling [None]
  - Abdominal distension [None]
  - Dysgeusia [None]
  - Tinnitus [None]
  - Fatigue [None]
  - Urinary tract infection [None]
  - Urine odour abnormal [None]
  - Gait disturbance [None]
  - Weight increased [None]
  - Hyperhidrosis [None]
  - Skin odour abnormal [None]
